FAERS Safety Report 14829697 (Version 1)
Quarter: 2018Q2

REPORT INFORMATION
  Report Type: Spontaneous
  Country: US (occurrence: US)
  Receive Date: 20180418
  Receipt Date: 20180418
  Transmission Date: 20180711
  Serious: Yes (Hospitalization)
  Sender: FDA-Public Use
  Company Number: None

PATIENT
  Sex: Female
  Weight: 48.53 kg

DRUGS (4)
  1. OXYCODONE 10MG [Suspect]
     Active Substance: OXYCODONE
  2. OXYCODONE HCL 5MG [Suspect]
     Active Substance: OXYCODONE
     Indication: PAIN
  3. OXYCODONE HCL 5MG [Suspect]
     Active Substance: OXYCODONE
     Indication: ARTHRALGIA
  4. OXYCODONE HCL 5MG [Suspect]
     Active Substance: OXYCODONE
     Indication: BACK PAIN

REACTIONS (14)
  - Vomiting [None]
  - Dyspnoea [None]
  - Alopecia [None]
  - Memory impairment [None]
  - Pain [None]
  - Abdominal pain upper [None]
  - Hypertension [None]
  - Refusal of treatment by patient [None]
  - Nightmare [None]
  - Weight decreased [None]
  - Mental disorder [None]
  - Product quality issue [None]
  - Heart rate increased [None]
  - Insomnia [None]
